FAERS Safety Report 6143678-7 (Version None)
Quarter: 2009Q2

REPORT INFORMATION
  Report Type: 
  Country: None (occurrence: None)
  Receive Date: 20090403
  Receipt Date: 20090312
  Transmission Date: 20091009
  Serious: Yes (Other)
  Sender: FDA-Public Use
  Company Number: US-BIOGENIDEC-2009BI007727

PATIENT
  Age: 45 Year
  Sex: Female

DRUGS (1)
  1. AVONEX [Suspect]
     Indication: MULTIPLE SCLEROSIS
     Route: 030
     Dates: start: 20080801, end: 20081201

REACTIONS (5)
  - CARDIAC VALVE DISEASE [None]
  - DYSPNOEA [None]
  - FLUID RETENTION [None]
  - HEADACHE [None]
  - HYPERTENSION [None]
